FAERS Safety Report 9726121 (Version 3)
Quarter: 2014Q1

REPORT INFORMATION
  Report Type: Other
  Country: FI (occurrence: FI)
  Receive Date: 20131203
  Receipt Date: 20140310
  Transmission Date: 20141002
  Serious: Yes (Disabling, Other)
  Sender: FDA-Public Use
  Company Number: FI-CUBIST PHARMACEUTICAL, INC.-2013CBST001205

PATIENT
  Sex: 0

DRUGS (9)
  1. CUBICIN [Suspect]
     Indication: ENTEROCOCCAL SEPSIS
     Dosage: 8.5 MG/KG, QD
     Route: 042
     Dates: start: 20131021, end: 20131115
  2. CUBICIN [Suspect]
     Indication: DEVICE RELATED INFECTION
     Dosage: 850 MG, QD
     Route: 042
     Dates: start: 20131021, end: 20131115
  3. CUBICIN [Suspect]
     Indication: OFF LABEL USE
  4. EMCONCOR [Concomitant]
     Indication: PRODUCT USED FOR UNKNOWN INDICATION
     Dosage: UNK UNK UNK
     Route: 065
  5. FURESIS [Concomitant]
     Indication: PRODUCT USED FOR UNKNOWN INDICATION
     Dosage: UNK UNK, UNK
     Route: 065
  6. MAREVAN FORTE [Concomitant]
     Indication: PRODUCT USED FOR UNKNOWN INDICATION
     Dosage: UNK UNK UNK
     Route: 065
  7. PARA-TABS [Concomitant]
     Indication: PRODUCT USED FOR UNKNOWN INDICATION
     Dosage: UNK UNK, UNK
     Route: 065
  8. VESICARE [Concomitant]
     Indication: PRODUCT USED FOR UNKNOWN INDICATION
     Dosage: UNK UNK UNK
     Route: 065
  9. RENITEC COMP [Concomitant]
     Indication: PRODUCT USED FOR UNKNOWN INDICATION
     Dosage: 20/12.5 MG, UNK
     Route: 065

REACTIONS (4)
  - Deafness unilateral [Not Recovered/Not Resolved]
  - Deafness neurosensory [Not Recovered/Not Resolved]
  - Blood creatine phosphokinase increased [Recovered/Resolved]
  - Eosinophilia [Recovered/Resolved]
